FAERS Safety Report 8143222-9 (Version None)
Quarter: 2012Q1

REPORT INFORMATION
  Report Type: 
  Country: None (occurrence: None)
  Receive Date: 20120217
  Receipt Date: 20120206
  Transmission Date: 20120608
  Serious: Yes (Other)
  Sender: FDA-Public Use
  Company Number: IE-AMGEN-IRLSP2012008774

PATIENT
  Sex: Male

DRUGS (1)
  1. ENBREL [Suspect]
     Indication: ANKYLOSING SPONDYLITIS
     Dosage: INTERMITTENTLY AT AN UNKNOWN DOSAGE
     Dates: start: 20100101

REACTIONS (2)
  - HEMIANOPIA HETERONYMOUS [None]
  - INFECTION [None]
